FAERS Safety Report 20174956 (Version 1)
Quarter: 2021Q4

REPORT INFORMATION
  Report Type: Spontaneous
  Country: US (occurrence: US)
  Receive Date: 20211213
  Receipt Date: 20211213
  Transmission Date: 20220303
  Serious: Yes (Hospitalization, Other)
  Sender: FDA-Public Use
  Company Number: US-MLMSERVICE-20211125-3239033-1

PATIENT
  Age: 66 Year
  Sex: Male

DRUGS (4)
  1. GLIMEPIRIDE [Suspect]
     Active Substance: GLIMEPIRIDE
     Indication: Type 2 diabetes mellitus
  2. AXITINIB [Concomitant]
     Active Substance: AXITINIB
     Indication: Renal cell carcinoma stage IV
  3. PEMBROLIZUMAB [Concomitant]
     Active Substance: PEMBROLIZUMAB
     Indication: Renal cell carcinoma stage IV
  4. SEMAGLUTIDE [Concomitant]
     Active Substance: SEMAGLUTIDE
     Indication: Type 2 diabetes mellitus
     Dosage: 0.25 MG Q WEEKLY

REACTIONS (3)
  - Encephalopathy [Recovered/Resolved]
  - Hypoglycaemia [Recovered/Resolved]
  - Drug level increased [Recovered/Resolved]
